FAERS Safety Report 11022028 (Version 3)
Quarter: 2016Q3

REPORT INFORMATION
  Report Type: Spontaneous
  Country: US (occurrence: US)
  Receive Date: 20150413
  Receipt Date: 20160802
  Transmission Date: 20161109
  Serious: Yes (Other)
  Sender: FDA-Public Use
  Company Number: US-ELI_LILLY_AND_COMPANY-US201503010359

PATIENT
  Age: 81 Year
  Sex: Female

DRUGS (2)
  1. FORTEO [Suspect]
     Active Substance: TERIPARATIDE
     Dosage: UNK UNK, UNKNOWN
     Route: 065
  2. FORTEO [Suspect]
     Active Substance: TERIPARATIDE
     Indication: PRODUCT USED FOR UNKNOWN INDICATION
     Dosage: UNK UNK, UNKNOWN
     Route: 065
     Dates: start: 201404

REACTIONS (11)
  - Gastrooesophageal reflux disease [Unknown]
  - Weight decreased [Unknown]
  - Tinnitus [Unknown]
  - Memory impairment [Unknown]
  - Fall [Unknown]
  - Flatulence [Unknown]
  - Head injury [Unknown]
  - Fall [Unknown]
  - Tooth disorder [Unknown]
  - Haemorrhage [Unknown]
  - Decreased appetite [Unknown]

NARRATIVE: CASE EVENT DATE: 201604
